FAERS Safety Report 19507638 (Version 2)
Quarter: 2021Q3

REPORT INFORMATION
  Report Type: Spontaneous
  Country: DE (occurrence: DE)
  Receive Date: 20210708
  Receipt Date: 20210712
  Transmission Date: 20211014
  Serious: Yes (Death, Other)
  Sender: FDA-Public Use
  Company Number: DE-GILEAD-2021-0539642

PATIENT
  Age: 73 Year
  Sex: Female
  Weight: 52 kg

DRUGS (15)
  1. TARGIN [Concomitant]
     Active Substance: NALOXONE HYDROCHLORIDE\OXYCODONE HYDROCHLORIDE
  2. OPIPRAMOL [Concomitant]
     Active Substance: OPIPRAMOL
  3. COTRIM [Concomitant]
     Active Substance: SULFAMETHOXAZOLE\TRIMETHOPRIM
  4. CRESEMBA [Concomitant]
     Active Substance: ISAVUCONAZONIUM SULFATE
  5. CEFPODOXIME [Concomitant]
     Active Substance: CEFPODOXIME
  6. NOVALGIN (METAMIZOLE SODIUM) [Concomitant]
     Active Substance: METAMIZOLE SODIUM
  7. CYCLOPHOSPHAMIDE. [Concomitant]
     Active Substance: CYCLOPHOSPHAMIDE
     Indication: BONE MARROW CONDITIONING REGIMEN
     Dosage: UNK
     Dates: start: 202102, end: 202102
  8. ACICLOVIR [Concomitant]
     Active Substance: ACYCLOVIR
  9. MIRTAZAPINE. [Concomitant]
     Active Substance: MIRTAZAPINE
  10. HALOPERIDOL. [Concomitant]
     Active Substance: HALOPERIDOL
  11. YESCARTA [Suspect]
     Active Substance: AXICABTAGENE CILOLEUCEL
     Indication: DIFFUSE LARGE B-CELL LYMPHOMA
     Dosage: UNK
     Route: 042
     Dates: start: 20210217, end: 20210217
  12. RITUXIMAB. [Concomitant]
     Active Substance: RITUXIMAB
     Indication: DIFFUSE LARGE B-CELL LYMPHOMA
     Dosage: UNK
     Dates: start: 202101
  13. FLUDARABINE [Concomitant]
     Active Substance: FLUDARABINE PHOSPHATE
     Indication: BONE MARROW CONDITIONING REGIMEN
     Dosage: UNK
     Dates: start: 202102, end: 202102
  14. FORTIMEL [Concomitant]
     Active Substance: DIETARY SUPPLEMENT
  15. TAVOR (LORAZEPAM) [Concomitant]
     Active Substance: LORAZEPAM

REACTIONS (1)
  - Death [Fatal]
